FAERS Safety Report 8241395-0 (Version None)
Quarter: 2012Q1

REPORT INFORMATION
  Report Type: 
  Country: None (occurrence: None)
  Receive Date: 20120328
  Receipt Date: 20120313
  Transmission Date: 20120608
  Serious: Yes (Death)
  Sender: FDA-Public Use
  Company Number: MK-SHIRE-SPV1-2012-00315

PATIENT

DRUGS (1)
  1. IDURSULFASE [Suspect]
     Dosage: 0.5 MG/KG, 1X/WEEK

REACTIONS (2)
  - INFUSION RELATED REACTION [None]
  - RESPIRATORY FAILURE [None]
